FAERS Safety Report 20545178 (Version 1)
Quarter: 2022Q1

REPORT INFORMATION
  Report Type: Spontaneous
  Country: US (occurrence: US)
  Receive Date: 20220303
  Receipt Date: 20220303
  Transmission Date: 20220423
  Serious: No
  Sender: FDA-Public Use
  Company Number: US-ALLERGAN-2105748US

PATIENT
  Sex: Female

DRUGS (3)
  1. RESTASIS [Suspect]
     Active Substance: CYCLOSPORINE
     Indication: Eye irritation
     Dosage: 2 GTT, BID
     Route: 047
     Dates: start: 202101
  2. RESTASIS [Suspect]
     Active Substance: CYCLOSPORINE
     Indication: Eye irritation
  3. CRESTOR [Concomitant]
     Active Substance: ROSUVASTATIN CALCIUM
     Indication: Blood cholesterol increased

REACTIONS (5)
  - Product packaging issue [Unknown]
  - Incorrect dose administered [Unknown]
  - Product dose omission issue [Unknown]
  - Eye pruritus [Unknown]
  - Eye irritation [Unknown]
